FAERS Safety Report 20923633 (Version 1)
Quarter: 2022Q2

REPORT INFORMATION
  Report Type: Spontaneous
  Country: US (occurrence: US)
  Receive Date: 20220607
  Receipt Date: 20220607
  Transmission Date: 20220721
  Serious: No
  Sender: FDA-Public Use
  Company Number: US-ORGANON-O2206USA000073

PATIENT
  Age: 31 Year
  Sex: Female
  Weight: 126.98 kg

DRUGS (2)
  1. NEXPLANON [Suspect]
     Active Substance: ETONOGESTREL
     Indication: Contraception
     Dosage: 1 IMPLANT (DOSE/FREQUENCY REPORTED AS 68 MG)
     Route: 059
     Dates: start: 20220531, end: 20220531
  2. NEXPLANON [Suspect]
     Active Substance: ETONOGESTREL
     Indication: Contraception
     Dosage: 1 IMPLANT (DOSE/FREQUENCY REPORTED AS 68 MG)
     Route: 059
     Dates: start: 20220531, end: 20220531

REACTIONS (4)
  - Complication of device insertion [Not Recovered/Not Resolved]
  - Complication of device insertion [Not Recovered/Not Resolved]
  - Product quality issue [Unknown]
  - No adverse event [Unknown]

NARRATIVE: CASE EVENT DATE: 20220531
